FAERS Safety Report 6602381-7 (Version None)
Quarter: 2010Q1

REPORT INFORMATION
  Report Type: 
  Country: None (occurrence: None)
  Receive Date: 20100225
  Receipt Date: 20100217
  Transmission Date: 20100710
  Serious: Yes (Death, Other)
  Sender: FDA-Public Use
  Company Number: B0528832A

PATIENT
  Age: 3 Month
  Sex: Male
  Weight: 3.2 kg

DRUGS (6)
  1. COMBIVIR [Suspect]
     Indication: HIV INFECTION
  2. ZIDOVUDINE [Suspect]
     Indication: ANTIVIRAL PROPHYLAXIS
  3. VIRAMUNE [Suspect]
     Indication: HIV INFECTION
  4. KALETRA [Suspect]
     Indication: HIV INFECTION
  5. LAMIVUDINE [Suspect]
     Indication: ANTIVIRAL PROPHYLAXIS
  6. SEPTRIN [Concomitant]
     Route: 065

REACTIONS (2)
  - DEATH [None]
  - DRUG EXPOSURE DURING PREGNANCY [None]
